FAERS Safety Report 24696665 (Version 1)
Quarter: 2024Q4

REPORT INFORMATION
  Report Type: Spontaneous
  Country: CZ (occurrence: CZ)
  Receive Date: 20241204
  Receipt Date: 20241204
  Transmission Date: 20250115
  Serious: Yes (Death, Hospitalization, Other)
  Sender: BAUSCH AND LOMB
  Company Number: CZ-002147023-NVSC2024CZ225228

PATIENT
  Age: 45 Year
  Sex: Female

DRUGS (19)
  1. DEXAMETHASONE [Interacting]
     Active Substance: DEXAMETHASONE
     Indication: Constipation
     Dosage: UNK
     Route: 065
  2. CARBAMAZEPINE [Interacting]
     Active Substance: CARBAMAZEPINE
     Indication: Epilepsy
     Dosage: 300 MG (2-1-0-2)
     Route: 048
  3. CARBAMAZEPINE [Interacting]
     Active Substance: CARBAMAZEPINE
     Dosage: 300 MG (2-0-0-2)
     Route: 048
  4. CARBAMAZEPINE [Interacting]
     Active Substance: CARBAMAZEPINE
     Dosage: 300 MG (2-0-2)
     Route: 048
  5. CARBAMAZEPINE [Interacting]
     Active Substance: CARBAMAZEPINE
     Dosage: 600 MG, BID
     Route: 048
  6. CIPROFLOXACIN [Suspect]
     Active Substance: CIPROFLOXACIN
     Indication: Pneumonia legionella
     Dosage: UNK
     Route: 065
  7. QUETIAPINE [Interacting]
     Active Substance: QUETIAPINE
     Indication: Product used for unknown indication
     Dosage: 300 MG, QD (0-0-0-1)
     Route: 048
  8. QUETIAPINE [Interacting]
     Active Substance: QUETIAPINE
     Dosage: 200 MG, QD (1-0-0)
     Route: 048
  9. CLARITHROMYCIN [Interacting]
     Active Substance: CLARITHROMYCIN
     Indication: C-reactive protein increased
     Dosage: UNK
     Route: 065
  10. CLARITHROMYCIN [Interacting]
     Active Substance: CLARITHROMYCIN
     Indication: Procalcitonin increased
  11. CLARITHROMYCIN [Interacting]
     Active Substance: CLARITHROMYCIN
     Indication: Lung infiltration
  12. HALOPERIDOL [Suspect]
     Active Substance: HALOPERIDOL
     Indication: Product used for unknown indication
     Dosage: 1.5 MG (1-1-2)
     Route: 048
  13. MELPERONE [Suspect]
     Active Substance: MELPERONE
     Indication: Product used for unknown indication
     Dosage: 25 MG, (1-1-2-3)
     Route: 048
  14. LEVOTHYROXINE [Concomitant]
     Active Substance: LEVOTHYROXINE
     Indication: Hypothyroidism
     Dosage: UNK (125 MICROGRAM) (MONDAY-FRIDAY) (1-0-0)
     Route: 048
  15. LEVOTHYROXINE [Concomitant]
     Active Substance: LEVOTHYROXINE
     Dosage: UNK (125 MICROGRAM) 1.5-0-0 (SATURDAY-SUNDAY)
     Route: 048
  16. LEVOMEPROMAZINE [Concomitant]
     Active Substance: LEVOMEPROMAZINE
     Indication: Product used for unknown indication
     Dosage: 25 MG, TID (1-1-0-1)
     Route: 048
  17. VALPROATE [Concomitant]
     Active Substance: VALPROIC ACID
     Indication: Product used for unknown indication
     Dosage: 500 MG, BID (1-0-1)
     Route: 048
  18. DIAZEPAM [Concomitant]
     Active Substance: DIAZEPAM
     Indication: Product used for unknown indication
     Dosage: 10 MG, TID (1-1-0-1)
     Route: 048
  19. LACTULOSE [Concomitant]
     Active Substance: LACTULOSE
     Indication: Constipation
     Dosage: UNK, TID (TABLE SPOON)

REACTIONS (7)
  - Torsade de pointes [Fatal]
  - Leukopenia [Unknown]
  - Thrombocytopenia [Unknown]
  - Hyponatraemia [Recovered/Resolved]
  - Electrocardiogram QT prolonged [Unknown]
  - Drug level increased [Unknown]
  - Drug interaction [Unknown]
